FAERS Safety Report 8840383 (Version 4)
Quarter: 2015Q2

REPORT INFORMATION
  Report Type: Spontaneous
  Country: US (occurrence: US)
  Receive Date: 20121015
  Receipt Date: 20150629
  Transmission Date: 20150821
  Serious: Yes (Hospitalization, Disabling, Other)
  Sender: FDA-Public Use
  Company Number: US-009507513-1210USA004471

PATIENT
  Sex: Female

DRUGS (4)
  1. FOSAMAX PLUS D [Suspect]
     Active Substance: ALENDRONATE SODIUM\CHOLECALCIFEROL
     Dosage: 70 MG/2800IU, UNK
     Route: 048
     Dates: start: 20060404
  2. FOSAMAX [Suspect]
     Active Substance: ALENDRONATE SODIUM
     Indication: OSTEOPOROSIS
     Dosage: UNK
     Route: 048
  3. FOSAMAX [Suspect]
     Active Substance: ALENDRONATE SODIUM
     Indication: OSTEOPOROSIS
     Dosage: 70 MG, UNK
     Route: 048
     Dates: start: 20020411
  4. ALENDRONATE SODIUM. [Suspect]
     Active Substance: ALENDRONATE SODIUM
     Indication: OSTEOPOROSIS
     Dosage: 70 MG, UNK
     Route: 048
     Dates: start: 20080428

REACTIONS (23)
  - Osteoarthritis [Unknown]
  - Arthritis [Unknown]
  - Bone cancer [Unknown]
  - Spondylolisthesis [Unknown]
  - Arthropathy [Not Recovered/Not Resolved]
  - Sciatica [Unknown]
  - Drug ineffective [Unknown]
  - Hip fracture [Not Recovered/Not Resolved]
  - Lower limb fracture [Unknown]
  - Therapeutic response decreased [Unknown]
  - Intramedullary rod insertion [Unknown]
  - Low turnover osteopathy [Not Recovered/Not Resolved]
  - Intervertebral disc degeneration [Unknown]
  - Femur fracture [Not Recovered/Not Resolved]
  - Rib fracture [Recovered/Resolved]
  - Hypertension [Unknown]
  - Spinal column stenosis [Unknown]
  - Osteopenia [Unknown]
  - Drug ineffective [Unknown]
  - Spinal deformity [Unknown]
  - Fall [Unknown]
  - Infection [Unknown]
  - Chronic obstructive pulmonary disease [Not Recovered/Not Resolved]

NARRATIVE: CASE EVENT DATE: 2004
